FAERS Safety Report 18539169 (Version 1)
Quarter: 2020Q4

REPORT INFORMATION
  Report Type: Spontaneous
  Country: GB (occurrence: GB)
  Receive Date: 20201124
  Receipt Date: 20201124
  Transmission Date: 20210114
  Serious: Yes (Death)
  Sender: FDA-Public Use
  Company Number: GB-DOVA PHARMACEUTICALS INC.-DOV-000735

PATIENT

DRUGS (2)
  1. DOPTELET [Suspect]
     Active Substance: AVATROMBOPAG MALEATE
     Indication: LIVER DISORDER
     Dosage: 60 MILLIGRAM, QD
     Route: 048
  2. DOPTELET [Suspect]
     Active Substance: AVATROMBOPAG MALEATE
     Indication: ILL-DEFINED DISORDER

REACTIONS (3)
  - Proteus syndrome [Fatal]
  - Partial seizures [Fatal]
  - Hepatic failure [Fatal]
